FAERS Safety Report 23336864 (Version 1)
Quarter: 2023Q4

REPORT INFORMATION
  Report Type: Spontaneous
  Country: CH (occurrence: CH)
  Receive Date: 20231226
  Receipt Date: 20231226
  Transmission Date: 20240110
  Serious: Yes (Other)
  Sender: FDA-Public Use
  Company Number: CH-BoehringerIngelheim-2023-BI-279331

PATIENT
  Age: 54 Year
  Sex: Male
  Weight: 112 kg

DRUGS (56)
  1. CLONIDINE [Suspect]
     Active Substance: CLONIDINE
     Indication: Product used for unknown indication
     Dates: start: 20230921, end: 20230921
  2. CLONIDINE [Suspect]
     Active Substance: CLONIDINE
     Dates: start: 20231028
  3. MEROPENEM [Suspect]
     Active Substance: MEROPENEM
     Indication: Product used for unknown indication
     Dosage: MEROPENEM TRIHYDRATE
     Dates: start: 20230912, end: 20230915
  4. MEROPENEM [Suspect]
     Active Substance: MEROPENEM
     Indication: Product used for unknown indication
     Dates: start: 20231026, end: 20231027
  5. BACTRIM [Suspect]
     Active Substance: SULFAMETHOXAZOLE\TRIMETHOPRIM
     Indication: Product used for unknown indication
     Dates: start: 20231017, end: 20231025
  6. REMDESIVIR [Suspect]
     Active Substance: REMDESIVIR
     Indication: COVID-19
     Dates: start: 20231023, end: 20231025
  7. TORSEMIDE [Suspect]
     Active Substance: TORSEMIDE
     Indication: Product used for unknown indication
     Dates: start: 20231013
  8. TORSEMIDE [Suspect]
     Active Substance: TORSEMIDE
     Dates: start: 20231013
  9. CANDESARTAN CILEXETIL [Suspect]
     Active Substance: CANDESARTAN CILEXETIL
     Indication: Product used for unknown indication
     Dates: start: 20231018
  10. AMLODIPINE [Suspect]
     Active Substance: AMLODIPINE BESYLATE
     Indication: Product used for unknown indication
     Dates: start: 20231019
  11. AMLODIPINE [Suspect]
     Active Substance: AMLODIPINE BESYLATE
     Dates: start: 20231017, end: 20231018
  12. ENOXAPARIN SODIUM [Suspect]
     Active Substance: ENOXAPARIN SODIUM
     Indication: Product used for unknown indication
     Dates: start: 20231020
  13. Heparinum [Concomitant]
     Indication: Product used for unknown indication
     Dates: start: 20230927, end: 20231020
  14. SODIUM PICOSULFATE [Concomitant]
     Active Substance: SODIUM PICOSULFATE
     Indication: Product used for unknown indication
     Dates: start: 20230919, end: 20231005
  15. FOLIC ACID [Concomitant]
     Active Substance: FOLIC ACID
     Indication: Product used for unknown indication
     Dates: start: 20230920
  16. VANCOCIN [Concomitant]
     Active Substance: VANCOMYCIN HYDROCHLORIDE
     Indication: Product used for unknown indication
     Dates: start: 20230912, end: 20230914
  17. CEFTRIAXONE [Concomitant]
     Active Substance: CEFTRIAXONE\CEFTRIAXONE SODIUM
     Indication: Product used for unknown indication
     Dates: start: 20230911, end: 20230912
  18. AMOXICILLIN\CLAVULANATE POTASSIUM [Concomitant]
     Active Substance: AMOXICILLIN\CLAVULANATE POTASSIUM
     Indication: Product used for unknown indication
     Dates: start: 20231025, end: 20231026
  19. AMOXICILLIN\CLAVULANATE POTASSIUM [Concomitant]
     Active Substance: AMOXICILLIN\CLAVULANATE POTASSIUM
     Dates: start: 20230916, end: 20230917
  20. CEFEPIME [Concomitant]
     Active Substance: CEFEPIME HYDROCHLORIDE
     Indication: Product used for unknown indication
     Dates: start: 20231027
  21. TACROLIMUS [Concomitant]
     Active Substance: TACROLIMUS
     Indication: Factor VIII deficiency
  22. METHADONE HYDROCHLORIDE [Concomitant]
     Active Substance: METHADONE HYDROCHLORIDE
     Indication: Substance dependence
     Dosage: 5 MG/1 ML 20 DRP
  23. METHADONE HYDROCHLORIDE [Concomitant]
     Active Substance: METHADONE HYDROCHLORIDE
     Dosage: 5 MG/1 ML 30 DRP
  24. METHADONE HYDROCHLORIDE [Concomitant]
     Active Substance: METHADONE HYDROCHLORIDE
     Indication: Product used for unknown indication
     Dosage: 10 MG/1 ML
     Dates: start: 20230912
  25. BECOZYM-F [Concomitant]
     Indication: Product used for unknown indication
     Dates: start: 20230912
  26. METAMIZOLE [Concomitant]
     Active Substance: METAMIZOLE
     Indication: Product used for unknown indication
     Dates: start: 20230917, end: 20231030
  27. PALLADONE [Concomitant]
     Active Substance: HYDROMORPHONE HYDROCHLORIDE
     Indication: Product used for unknown indication
     Dates: start: 20230917
  28. HYDROMORPHONE [Concomitant]
     Active Substance: HYDROMORPHONE
     Indication: Product used for unknown indication
     Dates: start: 20230917
  29. Dormicum [Concomitant]
     Indication: Product used for unknown indication
     Dates: start: 20230925
  30. ADVATE [Concomitant]
     Active Substance: ANTIHEMOPHILIC FACTOR, HUMAN RECOMBINANT
     Indication: Product used for unknown indication
     Dates: start: 20230919
  31. ADVATE [Concomitant]
     Active Substance: ANTIHEMOPHILIC FACTOR, HUMAN RECOMBINANT
     Dates: start: 20230917, end: 20231027
  32. ADVATE [Concomitant]
     Active Substance: ANTIHEMOPHILIC FACTOR, HUMAN RECOMBINANT
     Dates: start: 20230921
  33. NACL B.BRAUN [Concomitant]
     Indication: Product used for unknown indication
     Dosage: 50
  34. TRANEXAMIC ACID [Concomitant]
     Active Substance: TRANEXAMIC ACID
     Indication: Product used for unknown indication
     Dosage: 500 MG/5 ML
     Dates: start: 20230929, end: 20231017
  35. TRANEXAMIC ACID [Concomitant]
     Active Substance: TRANEXAMIC ACID
     Dosage: 500 MG/5 ML
     Dates: start: 20231027
  36. TRANEXAMIC ACID [Concomitant]
     Active Substance: TRANEXAMIC ACID
     Dosage: 500 MG/5 ML
     Dates: start: 20230924, end: 20230927
  37. HEMLIBRA [Concomitant]
     Active Substance: EMICIZUMAB-KXWH
     Indication: Factor VIII deficiency
     Dosage: 60 MG/0.4 ML
     Dates: start: 20231004, end: 20231004
  38. HEMLIBRA [Concomitant]
     Active Substance: EMICIZUMAB-KXWH
     Dosage: 150 MG/1 ML
     Dates: start: 20230912
  39. HEMLIBRA [Concomitant]
     Active Substance: EMICIZUMAB-KXWH
     Dosage: 105 MG/ 0.7 ML
     Dates: start: 20231004, end: 20231004
  40. NOVORAPID [Concomitant]
     Active Substance: INSULIN ASPART
     Indication: Product used for unknown indication
     Dates: start: 20230923
  41. LANTUS [Concomitant]
     Active Substance: INSULIN GLARGINE
     Indication: Product used for unknown indication
     Dates: start: 20230923
  42. DOMPERIDONE [Concomitant]
     Active Substance: DOMPERIDONE
     Indication: Product used for unknown indication
     Dates: start: 20230912
  43. VALVERDE SCHLAF [Concomitant]
     Indication: Product used for unknown indication
     Dates: start: 20230912
  44. LAXIPEG [Concomitant]
     Indication: Product used for unknown indication
     Dates: start: 20230912
  45. HERBALS [Concomitant]
     Active Substance: HERBALS
     Indication: Product used for unknown indication
     Dates: start: 20231027
  46. DAFALGAN [Concomitant]
     Active Substance: ACETAMINOPHEN
     Indication: Product used for unknown indication
     Dates: start: 20231029
  47. DAFALGAN [Concomitant]
     Active Substance: ACETAMINOPHEN
     Dates: start: 20230913, end: 20231027
  48. DAFALGAN [Concomitant]
     Active Substance: ACETAMINOPHEN
     Dates: start: 20231015, end: 20231030
  49. ONDANSETRON [Concomitant]
     Active Substance: ONDANSETRON
     Indication: Product used for unknown indication
     Dates: start: 20231001
  50. Imazol [Concomitant]
     Indication: Product used for unknown indication
     Dates: start: 20231012, end: 20231016
  51. ARANESP [Concomitant]
     Active Substance: DARBEPOETIN ALFA
     Indication: Product used for unknown indication
     Dates: start: 20230920, end: 20231002
  52. NEXIUM [Concomitant]
     Active Substance: ESOMEPRAZOLE MAGNESIUM
     Indication: Product used for unknown indication
     Dates: start: 20230912, end: 20231005
  53. Telebrix [Concomitant]
     Indication: Product used for unknown indication
     Dates: start: 20230920, end: 20231005
  54. THIAMINE HYDROCHLORIDE [Concomitant]
     Active Substance: THIAMINE HYDROCHLORIDE
     Indication: Product used for unknown indication
     Dates: start: 20230912, end: 20230917
  55. Temesta [Concomitant]
     Indication: Product used for unknown indication
     Dates: start: 20230921, end: 20230921
  56. KONAKION [Concomitant]
     Active Substance: PHYTONADIONE
     Indication: Product used for unknown indication
     Dosage: 10 MG/1 ML
     Dates: start: 20230924, end: 20230927

REACTIONS (1)
  - Liver disorder [Not Recovered/Not Resolved]
